FAERS Safety Report 5039131-4 (Version None)
Quarter: 2006Q2

REPORT INFORMATION
  Report Type: 
  Country: None (occurrence: None)
  Receive Date: 20060629
  Receipt Date: 20060328
  Transmission Date: 20061013
  Serious: Yes (Life-Threatening, Hospitalization)
  Sender: FDA-Public Use
  Company Number: US-GLAXOSMITHKLINE-A0599366A

PATIENT
  Age: 15 Month
  Sex: Female

DRUGS (1)
  1. WELLBUTRIN [Suspect]
     Route: 048
     Dates: start: 20060301, end: 20060301

REACTIONS (10)
  - ACCIDENTAL EXPOSURE [None]
  - GRAND MAL CONVULSION [None]
  - LOSS OF CONSCIOUSNESS [None]
  - MUSCULOSKELETAL STIFFNESS [None]
  - MYDRIASIS [None]
  - PNEUMONIA ASPIRATION [None]
  - POSTICTAL STATE [None]
  - RESPIRATORY ARREST [None]
  - STARING [None]
  - STATUS EPILEPTICUS [None]
